FAERS Safety Report 4613208-7 (Version None)
Quarter: 2005Q1

REPORT INFORMATION
  Report Type: 
  Country: None (occurrence: None)
  Receive Date: 20050315
  Receipt Date: 20050307
  Transmission Date: 20050727
  Serious: Yes (Hospitalization, Other)
  Sender: FDA-Public Use
  Company Number: 2005033506

PATIENT
  Age: 52 Year
  Sex: Male

DRUGS (17)
  1. LIPITOR [Suspect]
     Indication: HYPERLIPIDAEMIA
     Dosage: 20 MG (1 IN 1 D), ORAL
     Route: 048
     Dates: start: 20050115, end: 20050127
  2. ALL OTHER THERAPEUTIC PRODUCTS (ALL OTHER THERAPEUT1IC PRODUCTS) [Suspect]
     Indication: HYPERLIPIDAEMIA
     Dosage: 2 MG, ORAL
     Route: 048
     Dates: start: 20050128, end: 20050131
  3. TICLOPIDINE HCL [Suspect]
     Indication: ACUTE MYOCARDIAL INFARCTION
     Dosage: 200 MG (1 IN 1 D), ORAL
     Route: 048
     Dates: start: 20050114, end: 20050201
  4. FAMOTIDINE [Suspect]
     Indication: GASTRIC ULCER
     Dates: start: 20050114, end: 20050131
  5. ACETYLSALICYLIC ACID (ACETYLSALICYLIC ACID) [Concomitant]
  6. ENALAPRIL MALEATE [Concomitant]
  7. FUROSEMIDE [Concomitant]
  8. CILOSTAZOL [Concomitant]
  9. HEPARIN [Concomitant]
  10. ISOSORBIDE DINITRATE [Concomitant]
  11. ALL OTHER NON-THERAPEUTIC PRODUCTS (ALL OTHER NON-THERAPEUTIC PRODUCTS [Concomitant]
  12. LIDOCAINE HYDROCHLORIDE [Concomitant]
  13. ATROPINE [Concomitant]
  14. MORPHINE [Concomitant]
  15. UNACID (AMPICILLIN SODIUM, SULBACTAM SODIUM) [Concomitant]
  16. NICORANDIL (NICORANDIL) [Concomitant]
  17. BENIDIPINE HYDROCHLORIDE (BENIDIPINE HYDROCHLORIDE) [Concomitant]

REACTIONS (14)
  - ALANINE AMINOTRANSFERASE INCREASED [None]
  - ASPARTATE AMINOTRANSFERASE INCREASED [None]
  - BLOOD ALKALINE PHOSPHATASE INCREASED [None]
  - BLOOD BILIRUBIN INCREASED [None]
  - CHOLESTASIS [None]
  - DILATATION INTRAHEPATIC DUCT ACQUIRED [None]
  - EOSINOPHIL COUNT INCREASED [None]
  - JAUNDICE [None]
  - LYMPHOCYTE STIMULATION TEST POSITIVE [None]
  - MALAISE [None]
  - OCULAR ICTERUS [None]
  - PRURITUS GENERALISED [None]
  - RASH [None]
  - URTICARIA [None]
